FAERS Safety Report 7202762-7 (Version None)
Quarter: 2010Q4

REPORT INFORMATION
  Report Type: 
  Country: None (occurrence: None)
  Receive Date: 20101216
  Receipt Date: 20101201
  Transmission Date: 20110411
  Serious: Yes (Other)
  Sender: FDA-Public Use
  Company Number: 2010AP002587

PATIENT
  Sex: Female

DRUGS (1)
  1. PAROXETINE HCL [Suspect]
     Dosage: 20 MG; QD

REACTIONS (14)
  - ATRIAL SEPTAL DEFECT [None]
  - CONGENITAL HYPEREXTENSION OF SPINE [None]
  - CONGENITAL LIMB HYPEREXTENSION [None]
  - DYSMORPHISM [None]
  - FEELING JITTERY [None]
  - HYPERTELORISM OF ORBIT [None]
  - IRRITABILITY [None]
  - MATERNAL DRUGS AFFECTING FOETUS [None]
  - NASAL CONGESTION [None]
  - NEONATAL RESPIRATORY DISTRESS SYNDROME [None]
  - PREMATURE BABY [None]
  - PULMONARY VALVE STENOSIS [None]
  - RESPIRATORY DEPRESSION [None]
  - RIGHT AORTIC ARCH [None]
